FAERS Safety Report 6545546-5 (Version None)
Quarter: 2010Q1

REPORT INFORMATION
  Report Type: 
  Country: None (occurrence: None)
  Receive Date: 20100119
  Receipt Date: 20100113
  Transmission Date: 20100710
  Serious: Yes (Hospitalization)
  Sender: FDA-Public Use
  Company Number: 004369

PATIENT
  Sex: Female

DRUGS (3)
  1. LACOSAMIDE [Suspect]
     Indication: CONVULSION
     Dosage: (200 MG TID ORAL)
     Route: 048
     Dates: start: 20090901, end: 20090101
  2. ZONEGRAN [Concomitant]
  3. VALIUM [Concomitant]

REACTIONS (7)
  - ABDOMINAL PAIN UPPER [None]
  - BACK PAIN [None]
  - CONVULSION [None]
  - FALL [None]
  - HEAD INJURY [None]
  - NEPHROLITHIASIS [None]
  - VISION BLURRED [None]
